APPROVED DRUG PRODUCT: DORYX
Active Ingredient: DOXYCYCLINE HYCLATE
Strength: EQ 75MG BASE **Federal Register determination that product was not discontinued or withdrawn for safety or effectiveness reasons**
Dosage Form/Route: TABLET, DELAYED RELEASE;ORAL
Application: N050795 | Product #001
Applicant: MAYNE PHARMA INTERNATIONAL PTY LTD
Approved: May 6, 2005 | RLD: Yes | RS: No | Type: DISCN

PATENTS:
Patent 8715724 | Expires: Feb 3, 2028